FAERS Safety Report 17493644 (Version 1)
Quarter: 2020Q1

REPORT INFORMATION
  Report Type: Spontaneous
  Country: US (occurrence: US)
  Receive Date: 20200303
  Receipt Date: 20200303
  Transmission Date: 20200409
  Serious: No
  Sender: FDA-Public Use
  Company Number: US-AMNEAL PHARMACEUTICALS-2019-IPXL-01266

PATIENT
  Sex: Male
  Weight: 79.82 kg

DRUGS (5)
  1. CLONAZEPAM. [Concomitant]
     Active Substance: CLONAZEPAM
     Indication: PRODUCT USED FOR UNKNOWN INDICATION
     Dosage: 0.5 MILLIGRAM, EVENING
     Route: 065
  2. RYTARY [Suspect]
     Active Substance: CARBIDOPA\LEVODOPA
     Indication: PARKINSON^S DISEASE
     Dosage: 36.25-145 MG 2 CAPSULES FOUR TIMES A DAY, PLUS 48.75-195 MG 1 CAPSULE FOUR TIMES A DAY
     Route: 048
     Dates: start: 201810
  3. FINASTERIDE. [Concomitant]
     Active Substance: FINASTERIDE
     Indication: PRODUCT USED FOR UNKNOWN INDICATION
     Dosage: 5 MILLIGRAM, EVENING
     Route: 065
  4. RYTARY [Suspect]
     Active Substance: CARBIDOPA\LEVODOPA
     Dosage: 36.25-145 MG 2 CAPSULES THREE TIMES A DAY, PLUS 48.75-195 MG 1 CAPSULE THREE TIMES A DAY
     Route: 048
  5. TAMSULOSIN [Concomitant]
     Active Substance: TAMSULOSIN
     Indication: PRODUCT USED FOR UNKNOWN INDICATION
     Dosage: 10 MILLIGRAM, EVENING
     Route: 065

REACTIONS (2)
  - Intentional product use issue [Recovered/Resolved]
  - Tremor [Recovered/Resolved]
